FAERS Safety Report 4504969-6 (Version None)
Quarter: 2004Q4

REPORT INFORMATION
  Report Type: 
  Country: None (occurrence: None)
  Receive Date: 20041116
  Receipt Date: 20041108
  Transmission Date: 20050328
  Serious: Yes (Hospitalization)
  Sender: FDA-Public Use
  Company Number: GB-JNJFOC-20040600490

PATIENT
  Age: 57 Year
  Sex: Male

DRUGS (10)
  1. ACETAMINOPHEN [Suspect]
     Indication: ABDOMINAL PAIN UPPER
     Dosage: 1 GM QDS, DID NOT TAKE IT REGULARLY UNTIL 28-JAN-02 WHEN PHENAZOCINE STOPPED
     Dates: start: 20020123, end: 20020128
  2. CO-CODAMOL (PANADEINE CO) TABLETS [Suspect]
     Indication: ABDOMINAL PAIN UPPER
     Dosage: 8/500 2 TAB PRN
     Dates: end: 20020122
  3. OXYNORM (OXYCODONE HYDROCHLORIDE) [Suspect]
     Indication: PAIN
     Dosage: 2.5 MG 4 HOURLY
     Dates: start: 20020123, end: 20020125
  4. PHENAZOCINE (PHENAZOCINE) [Concomitant]
  5. METOCLOPRAMIDE (METOCLOPRAMINDE) [Concomitant]
  6. SENNA (SENNA) [Concomitant]
  7. CO-DANTHRAMER (DORBANEX) [Concomitant]
  8. ASCILONE (ALL OTHER NON-THERAPEUTIC PRODUCTS) [Concomitant]
  9. MORPHINE SULFATE [Concomitant]
  10. OMEPRAZOLE [Concomitant]

REACTIONS (10)
  - ANAPHYLACTOID REACTION [None]
  - ANGIONEUROTIC OEDEMA [None]
  - ASTHMA [None]
  - BRONCHOSPASM [None]
  - DRUG HYPERSENSITIVITY [None]
  - MEDICATION ERROR [None]
  - PAIN [None]
  - TREATMENT NONCOMPLIANCE [None]
  - URTICARIA [None]
  - WHEEZING [None]
